FAERS Safety Report 7455933-9 (Version None)
Quarter: 2011Q2

REPORT INFORMATION
  Report Type: 
  Country: None (occurrence: None)
  Receive Date: 20110503
  Receipt Date: 20110420
  Transmission Date: 20111010
  Serious: No
  Sender: FDA-Public Use
  Company Number: US-JNJFOC-20110410185

PATIENT
  Age: 38 Year
  Sex: Male

DRUGS (5)
  1. HYDROXYZINE [Concomitant]
     Route: 048
  2. INVEGA SUSTENNA [Suspect]
     Route: 030
  3. INVEGA SUSTENNA [Suspect]
     Route: 030
  4. INVEGA SUSTENNA [Suspect]
     Indication: PRODUCT USED FOR UNKNOWN INDICATION
     Route: 030
  5. ATIVAN [Concomitant]
     Route: 048

REACTIONS (1)
  - POLYDIPSIA [None]
